FAERS Safety Report 4521056-1 (Version None)
Quarter: 2004Q4

REPORT INFORMATION
  Report Type: 
  Country: None (occurrence: None)
  Receive Date: 20041206
  Receipt Date: 20041124
  Transmission Date: 20050328
  Serious: Yes (Other)
  Sender: FDA-Public Use
  Company Number: STA-AE-04-MTX-596

PATIENT
  Age: 56 Year
  Sex: Male

DRUGS (6)
  1. METHOTREXATE [Suspect]
     Indication: RHEUMATOID ARTHRITIS
     Dosage: 7.5 MG 1X PER WK, ORAL
     Route: 048
     Dates: start: 19980901
  2. METHOTREXATE [Suspect]
     Indication: RHEUMATOID ARTHRITIS
     Dosage: 15MG 1X PER WK, ORAL
     Route: 048
  3. METHOTREXATE [Concomitant]
     Dosage: 12.5 MG 1X PER WK
     Dates: start: 20011201
  4. CORTICOSTEROIDS (CORTICOSTROIDS) [Concomitant]
  5. METHYLSALAZOPYRINE (METHYLSALAZOPHRINE) [Concomitant]
  6. UNSPECIFIED NON-STEROIDAL ANTI-INFLAMMATORY AGENT(UNSPECIFIED NON-STER [Concomitant]

REACTIONS (4)
  - MACROCYTOSIS [None]
  - MYELODYSPLASTIC SYNDROME [None]
  - REFRACTORY ANAEMIA [None]
  - SIDEROBLASTIC ANAEMIA [None]
